FAERS Safety Report 17122148 (Version 4)
Quarter: 2025Q3

REPORT INFORMATION
  Report Type: Spontaneous
  Country: EU (occurrence: EU)
  Receive Date: 20191206
  Receipt Date: 20250902
  Transmission Date: 20251021
  Serious: Yes (Death, Life-Threatening, Hospitalization, Other)
  Sender: MYLAN
  Company Number: EU-SA-2019SA121073

PATIENT
  Age: 61 Year
  Sex: Female
  Weight: 77 kg

DRUGS (12)
  1. PREGABALIN [Suspect]
     Active Substance: PREGABALIN
     Indication: Product used for unknown indication
  2. PREGABALIN [Suspect]
     Active Substance: PREGABALIN
     Route: 065
  3. PREGABALIN [Suspect]
     Active Substance: PREGABALIN
     Route: 065
  4. PREGABALIN [Suspect]
     Active Substance: PREGABALIN
  5. IVABRADINE [Suspect]
     Active Substance: IVABRADINE
     Indication: Product used for unknown indication
  6. IVABRADINE [Suspect]
     Active Substance: IVABRADINE
     Route: 065
  7. IVABRADINE [Suspect]
     Active Substance: IVABRADINE
     Route: 065
  8. IVABRADINE [Suspect]
     Active Substance: IVABRADINE
  9. ZOPICLONE [Suspect]
     Active Substance: ZOPICLONE
     Indication: Product used for unknown indication
  10. ZOPICLONE [Suspect]
     Active Substance: ZOPICLONE
     Route: 065
  11. ZOPICLONE [Suspect]
     Active Substance: ZOPICLONE
     Route: 065
  12. ZOPICLONE [Suspect]
     Active Substance: ZOPICLONE

REACTIONS (15)
  - Completed suicide [Fatal]
  - Multiple organ dysfunction syndrome [Fatal]
  - Toxicity to various agents [Fatal]
  - Bradycardia [Fatal]
  - Cardiac failure [Fatal]
  - Poisoning [Fatal]
  - Somnolence [Fatal]
  - Hypotension [Fatal]
  - Cardiac arrest [Fatal]
  - Intentional overdose [Fatal]
  - Intentional product use issue [Fatal]
  - Cardiac hypertrophy [Unknown]
  - Respiratory depression [Unknown]
  - Cardiomyopathy [Unknown]
  - Bundle branch block left [Unknown]

NARRATIVE: CASE EVENT DATE: 20190101
